FAERS Safety Report 8114795-7 (Version None)
Quarter: 2012Q1

REPORT INFORMATION
  Report Type: 
  Country: None (occurrence: None)
  Receive Date: 20120206
  Receipt Date: 20120124
  Transmission Date: 20120608
  Serious: Yes (Hospitalization, Other)
  Sender: FDA-Public Use
  Company Number: US-ELI_LILLY_AND_COMPANY-US201010001139

PATIENT
  Sex: Female

DRUGS (5)
  1. FORTEO [Suspect]
     Indication: OSTEOPOROSIS
     Dosage: 20 UG, QD
  2. FORTEO [Suspect]
     Dosage: 20 UG, QD
  3. FORTEO [Suspect]
     Dosage: 20 UG, QD
  4. FORTEO [Suspect]
     Dosage: 20 UG, QD
  5. FORTEO [Suspect]
     Dosage: 20 UG, QD

REACTIONS (18)
  - INJECTION SITE HAEMATOMA [None]
  - SLEEP DISORDER [None]
  - DECREASED ACTIVITY [None]
  - BACK INJURY [None]
  - FALL [None]
  - MALAISE [None]
  - BRONCHITIS [None]
  - PANCREATITIS [None]
  - DYSPNOEA [None]
  - HAEMATOMA [None]
  - MUSCLE SPASMS [None]
  - JOINT SWELLING [None]
  - OXYGEN SATURATION DECREASED [None]
  - WEIGHT INCREASED [None]
  - OROPHARYNGEAL PAIN [None]
  - SLEEP DISORDER DUE TO A GENERAL MEDICAL CONDITION [None]
  - PAIN [None]
  - CATARACT [None]
